FAERS Safety Report 8589637-6 (Version None)
Quarter: 2012Q3

REPORT INFORMATION
  Report Type: 
  Country: None (occurrence: None)
  Receive Date: 20120813
  Receipt Date: 20120730
  Transmission Date: 20120928
  Serious: Yes (Hospitalization)
  Sender: FDA-Public Use
  Company Number: BR-MYLANLABS-2012S1015749

PATIENT
  Age: 95 Year
  Sex: Female

DRUGS (1)
  1. CIPROFLOXACIN [Suspect]
     Indication: CYSTITIS
     Route: 048

REACTIONS (4)
  - HAEMATEMESIS [None]
  - FOOD INTERACTION [None]
  - MELAENA [None]
  - OESOPHAGEAL DISORDER [None]
